FAERS Safety Report 6727487-3 (Version None)
Quarter: 2010Q2

REPORT INFORMATION
  Report Type: 
  Country: None (occurrence: None)
  Receive Date: 20100517
  Receipt Date: 20100507
  Transmission Date: 20101027
  Serious: Yes (Hospitalization)
  Sender: FDA-Public Use
  Company Number: JP-BRISTOL-MYERS SQUIBB COMPANY-15061872

PATIENT
  Age: 46 Year
  Sex: Female
  Weight: 71 kg

DRUGS (9)
  1. ABILIFY [Suspect]
     Indication: SCHIZOPHRENIA
     Dosage: 16FEB-01MAR2009,6MG,14D 02-16MAR2009,12MG,15D 17MAR2009-11APR2010,18MG,391D 12APR2010,12MG
     Route: 048
     Dates: start: 20090216
  2. WARFARIN SODIUM [Suspect]
     Indication: PULMONARY EMBOLISM
     Dates: start: 20080601
  3. ZYPREXA [Suspect]
     Indication: HALLUCINATION, AUDITORY
     Dosage: TABS;16FEB-01MAR2009,14D,10MG;02-16MAR09,15D,5MG;02MAR09:DOSE REDUCED TO 5MG/D
     Route: 048
     Dates: start: 20040902, end: 20090316
  4. ZYPREXA [Suspect]
     Indication: PERSECUTORY DELUSION
     Dosage: TABS;16FEB-01MAR2009,14D,10MG;02-16MAR09,15D,5MG;02MAR09:DOSE REDUCED TO 5MG/D
     Route: 048
     Dates: start: 20040902, end: 20090316
  5. ZYPREXA [Suspect]
     Indication: SCHIZOPHRENIA
     Dosage: TABS;16FEB-01MAR2009,14D,10MG;02-16MAR09,15D,5MG;02MAR09:DOSE REDUCED TO 5MG/D
     Route: 048
     Dates: start: 20040902, end: 20090316
  6. CONTOMIN [Suspect]
     Dosage: FORM: TABLET
     Dates: start: 20091124
  7. SERENACE [Concomitant]
  8. SEDIEL [Concomitant]
     Dosage: TABS
     Dates: start: 20090928, end: 20091123
  9. BROTIZOLAM [Concomitant]
     Dosage: TABS
     Dates: start: 20091124

REACTIONS (1)
  - PULMONARY EMBOLISM [None]
